FAERS Safety Report 5364685-8 (Version None)
Quarter: 2007Q2

REPORT INFORMATION
  Report Type: 
  Country: None (occurrence: None)
  Receive Date: 20070621
  Receipt Date: 20070612
  Transmission Date: 20071010
  Serious: Yes (Hospitalization)
  Sender: FDA-Public Use
  Company Number: PHEH2007US06837

PATIENT
  Age: 64 Year
  Sex: Female

DRUGS (1)
  1. ZELNORM [Suspect]
     Indication: CONSTIPATION
     Dosage: 6 MG, BID
     Dates: start: 20060401, end: 20070503

REACTIONS (10)
  - AGRANULOCYTOSIS [None]
  - APHASIA [None]
  - BLOOD GLUCOSE DECREASED [None]
  - COLITIS [None]
  - DYSPNOEA [None]
  - GAIT DISTURBANCE [None]
  - HORMONE LEVEL ABNORMAL [None]
  - MYCOBACTERIUM AVIUM COMPLEX INFECTION [None]
  - RENAL ARTERY OCCLUSION [None]
  - STENT PLACEMENT [None]
